FAERS Safety Report 7162051-6 (Version None)
Quarter: 2010Q4

REPORT INFORMATION
  Report Type: 
  Country: None (occurrence: None)
  Receive Date: 20101201
  Receipt Date: 20101122
  Transmission Date: 20110411
  Serious: Yes (Hospitalization)
  Sender: FDA-Public Use
  Company Number: AX257-10-0642

PATIENT
  Age: 76 Year
  Sex: Female
  Weight: 75.7 kg

DRUGS (1)
  1. ABRAXANE [Suspect]
     Indication: SQUAMOUS CELL CARCINOMA OF THE CERVIX
     Dosage: (125 MG/M2)
     Dates: start: 20100819

REACTIONS (1)
  - HAEMORRHAGE URINARY TRACT [None]
